FAERS Safety Report 7887303-3 (Version None)
Quarter: 2011Q4

REPORT INFORMATION
  Report Type: 
  Country: None (occurrence: None)
  Receive Date: 20111102
  Receipt Date: 20110718
  Transmission Date: 20120403
  Serious: No
  Sender: FDA-Public Use
  Company Number: US-AMGEN-USASP2011036568

PATIENT
  Age: 40 Year
  Sex: Male

DRUGS (1)
  1. ENBREL [Suspect]
     Indication: PSORIASIS
     Dosage: 50 MG, 2 TIMES/WK
     Dates: start: 20110427

REACTIONS (6)
  - WOUND HAEMORRHAGE [None]
  - ERYTHEMA [None]
  - PSORIASIS [None]
  - BLISTER [None]
  - WOUND SECRETION [None]
  - ANIMAL SCRATCH [None]
